FAERS Safety Report 11068756 (Version 2)
Quarter: 2015Q2

REPORT INFORMATION
  Report Type: Spontaneous
  Country: US (occurrence: US)
  Receive Date: 20150427
  Receipt Date: 20150430
  Transmission Date: 20150821
  Serious: Yes (Other)
  Sender: FDA-Public Use
  Company Number: US-PFIZER INC-2015144431

PATIENT
  Age: 38 Year
  Sex: Male
  Weight: 86 kg

DRUGS (12)
  1. NEURONTIN [Concomitant]
     Active Substance: GABAPENTIN
     Indication: PAIN
     Dosage: 800 MG, 3X/DAY
     Route: 048
     Dates: start: 201411
  2. LIDOCAINE. [Concomitant]
     Active Substance: LIDOCAINE
     Dosage: UNK
     Route: 061
     Dates: start: 201411
  3. PLETAL [Concomitant]
     Active Substance: CILOSTAZOL
     Indication: ANTICOAGULANT THERAPY
     Dosage: 100 MG, 1X/DAY
     Route: 048
     Dates: start: 201411
  4. XANAX [Concomitant]
     Active Substance: ALPRAZOLAM
     Indication: ANXIETY
     Dosage: 0.25 MG, AS NEEDED
     Route: 048
     Dates: start: 201411
  5. ROXICODONE [Concomitant]
     Active Substance: OXYCODONE HYDROCHLORIDE
     Indication: PAIN
     Dosage: ONE 20MG TABLET, FIVE TIMES A DAY
     Route: 048
     Dates: start: 201502
  6. ATIVAN [Concomitant]
     Active Substance: LORAZEPAM
     Indication: MENIERE^S DISEASE
     Dosage: 10 MG, AS NEEDED
     Route: 048
     Dates: start: 2012
  7. CHANTIX [Suspect]
     Active Substance: VARENICLINE TARTRATE
     Indication: SMOKING CESSATION THERAPY
     Dosage: 1 MG, 2X/DAY (1 MG TABLET, ONE BY MOUTH TWICE A DAY)
     Route: 048
     Dates: start: 201503, end: 20150418
  8. PROCARDIA [Concomitant]
     Active Substance: NIFEDIPINE
     Indication: ANGIOPATHY
     Dosage: 60 MG, DAILY
     Route: 048
     Dates: start: 201501
  9. SILVER SULFADIAZINE. [Concomitant]
     Active Substance: SILVER SULFADIAZINE
     Dosage: UNK
     Dates: start: 201503
  10. MS CONTIN [Concomitant]
     Active Substance: MORPHINE SULFATE
     Indication: PAIN
     Dosage: 15 MG, 2X/DAY
     Route: 048
     Dates: start: 201411
  11. PLAVIX [Concomitant]
     Active Substance: CLOPIDOGREL BISULFATE
     Indication: ANTICOAGULANT THERAPY
     Dosage: 75 MG, DAILY
     Route: 048
     Dates: start: 20150319
  12. KLONOPIN [Concomitant]
     Active Substance: CLONAZEPAM
     Dosage: UNK
     Route: 048
     Dates: end: 201503

REACTIONS (8)
  - Emotional disorder [Recovered/Resolved]
  - Spousal abuse [Recovered/Resolved]
  - Anger [Recovered/Resolved]
  - Crying [Recovered/Resolved]
  - Vomiting [Unknown]
  - Aggression [Recovered/Resolved]
  - Homicidal ideation [Recovered/Resolved]
  - Aggression [Recovered/Resolved]

NARRATIVE: CASE EVENT DATE: 2015
